FAERS Safety Report 9290882 (Version 2)
Quarter: 2014Q2

REPORT INFORMATION
  Report Type: Spontaneous
  Country: US (occurrence: US)
  Receive Date: 20130515
  Receipt Date: 20140425
  Transmission Date: 20141212
  Serious: Yes (Congenital Anomaly)
  Sender: FDA-Public Use
  Company Number: US-PFIZER INC-2013147922

PATIENT
  Sex: Female

DRUGS (2)
  1. ZOLOFT [Suspect]
     Dosage: UNK
     Route: 064
     Dates: start: 1992, end: 200302
  2. ZOLOFT [Suspect]
     Dosage: UNK
     Route: 064
     Dates: start: 200305

REACTIONS (3)
  - Maternal exposure during pregnancy [Unknown]
  - Cardiac murmur [Unknown]
  - Lung disorder [Unknown]
